FAERS Safety Report 21596689 (Version 1)
Quarter: 2022Q4

REPORT INFORMATION
  Report Type: Spontaneous
  Country: US (occurrence: US)
  Receive Date: 20221115
  Receipt Date: 20221115
  Transmission Date: 20230113
  Serious: No
  Sender: FDA-Public Use
  Company Number: US-AMNEAL PHARMACEUTICALS-2022-AMRX-00444

PATIENT
  Age: 15 Year
  Sex: Male

DRUGS (3)
  1. ISOTRETINOIN [Suspect]
     Active Substance: ISOTRETINOIN
     Indication: Acne
     Dosage: 60 MILLIGRAM, DAILY
     Route: 048
     Dates: start: 202202, end: 20220217
  2. ISOTRETINOIN [Suspect]
     Active Substance: ISOTRETINOIN
     Dosage: 30 MILLIGRAM, DAILY
     Route: 048
     Dates: start: 20220210, end: 202202
  3. FISH OIL [Concomitant]
     Active Substance: FISH OIL
     Indication: Product used for unknown indication
     Dosage: UNK
     Route: 048

REACTIONS (1)
  - Depression [Unknown]

NARRATIVE: CASE EVENT DATE: 20220201
